FAERS Safety Report 4620115-2 (Version None)
Quarter: 2005Q1

REPORT INFORMATION
  Report Type: 
  Country: None (occurrence: None)
  Receive Date: 20050328
  Receipt Date: 20050317
  Transmission Date: 20050727
  Serious: Yes (Death, Hospitalization)
  Sender: FDA-Public Use
  Company Number: 200512168US

PATIENT
  Sex: Female

DRUGS (2)
  1. LOVENOX [Suspect]
     Dosage: DOSE: UNK
  2. CLOZAPINE [Suspect]
     Indication: SCHIZOPHRENIA
     Route: 048
     Dates: start: 20020101, end: 20050101

REACTIONS (2)
  - DEATH [None]
  - DEEP VEIN THROMBOSIS [None]
